FAERS Safety Report 8838209 (Version 1)
Quarter: 2012Q4

REPORT INFORMATION
  Report Type: 
  Country: CZ (occurrence: CZ)
  Receive Date: 20121012
  Receipt Date: 20121012
  Transmission Date: 20130627
  Serious: Yes (Life-Threatening)
  Sender: FDA-Public Use
  Company Number: CZ-BRISTOL-MYERS SQUIBB COMPANY-17010992

PATIENT
  Age: 25 Year
  Sex: Female

DRUGS (1)
  1. NYSTATIN [Suspect]
     Indication: VULVOVAGINITIS
     Dates: start: 200201

REACTIONS (1)
  - Toxic epidermal necrolysis [Recovered/Resolved]
